FAERS Safety Report 25145518 (Version 1)
Quarter: 2025Q2

REPORT INFORMATION
  Report Type: Spontaneous
  Country: US (occurrence: US)
  Receive Date: 20250401
  Receipt Date: 20250401
  Transmission Date: 20250716
  Serious: Yes (Death, Other)
  Sender: PFIZER
  Company Number: US-PFIZER INC-PV202500036868

PATIENT
  Age: 24 Year
  Sex: Female

DRUGS (5)
  1. KETAMINE HYDROCHLORIDE [Suspect]
     Active Substance: KETAMINE HYDROCHLORIDE
  2. MIDOMAFETAMINE [Suspect]
     Active Substance: MIDOMAFETAMINE
  3. OXYCODONE [Suspect]
     Active Substance: OXYCODONE
  4. LAMOTRIGINE [Concomitant]
     Active Substance: LAMOTRIGINE
     Indication: Epilepsy
  5. CLONAZEPAM [Concomitant]
     Active Substance: CLONAZEPAM
     Indication: Epilepsy

REACTIONS (1)
  - Toxicity to various agents [Fatal]
